FAERS Safety Report 8370556-5 (Version None)
Quarter: 2012Q2

REPORT INFORMATION
  Report Type: 
  Country: None (occurrence: None)
  Receive Date: 20120518
  Receipt Date: 20120510
  Transmission Date: 20120825
  Serious: Yes (Hospitalization, Disabling)
  Sender: FDA-Public Use
  Company Number: IL-INCYTE CORPORATION-2012IN000826

PATIENT
  Sex: Male
  Weight: 55 kg

DRUGS (3)
  1. INC424 [Suspect]
     Indication: MYELOFIBROSIS
     Dosage: 15 MG, BID
     Route: 048
     Dates: start: 20120503
  2. ZYLOL [Concomitant]
     Dosage: UNK
     Dates: end: 20120505
  3. OMEPRADEX [Concomitant]
     Dosage: UNK
     Dates: end: 20120505

REACTIONS (1)
  - SPONTANEOUS HAEMATOMA [None]
